FAERS Safety Report 10498126 (Version 2)
Quarter: 2014Q4

REPORT INFORMATION
  Report Type: Spontaneous
  Country: US (occurrence: None)
  Receive Date: 20140815
  Receipt Date: 20141126
  Transmission Date: 20150528
  Serious: Yes (Other)
  Sender: FDA-Public Use
  Company Number: ADR-2013-02335

PATIENT
  Sex: Male

DRUGS (3)
  1. BACLOFEN INTRATHECAL [Suspect]
     Active Substance: BACLOFEN
     Indication: PAIN
  2. MORPHINE INTRATHECAL [Suspect]
     Active Substance: MORPHINE
  3. PRIALT [Suspect]
     Active Substance: ZICONOTIDE ACETATE

REACTIONS (7)
  - Visual acuity reduced [None]
  - Drug withdrawal syndrome [None]
  - Tooth erosion [None]
  - Vision blurred [None]
  - Impaired driving ability [None]
  - Balance disorder [None]
  - Stab wound [None]
